FAERS Safety Report 14928819 (Version 2)
Quarter: 2018Q3

REPORT INFORMATION
  Report Type: Spontaneous
  Country: JP (occurrence: JP)
  Receive Date: 20180523
  Receipt Date: 20180711
  Transmission Date: 20181010
  Serious: Yes (Other)
  Sender: FDA-Public Use
  Company Number: JP-PFIZER INC-2018015914

PATIENT
  Age: 69 Year
  Sex: Female

DRUGS (3)
  1. LETROZOLE. [Concomitant]
     Active Substance: LETROZOLE
     Dosage: 75 MG, UNK
  2. IBRANCE [Suspect]
     Active Substance: PALBOCICLIB
     Dosage: 125 MG, DAILY
     Route: 048
  3. IBRANCE [Suspect]
     Active Substance: PALBOCICLIB
     Dosage: 75 MG, UNK

REACTIONS (2)
  - Neutrophil count decreased [Recovered/Resolved]
  - Bone marrow failure [Not Recovered/Not Resolved]
